FAERS Safety Report 5331283-1 (Version None)
Quarter: 2007Q2

REPORT INFORMATION
  Report Type: 
  Country: None (occurrence: None)
  Receive Date: 20070306
  Receipt Date: 20060328
  Transmission Date: 20071010
  Serious: Yes (Hospitalization)
  Sender: FDA-Public Use
  Company Number: A03200601874

PATIENT
  Age: 49 Year
  Sex: Male
  Weight: 68.3 kg

DRUGS (8)
  1. PLAVIX [Suspect]
     Dosage: 75 MG QD, ORAL
     Route: 048
  2. MONOPRIL [Suspect]
     Dosage: 20 MG QD ORAL
     Route: 048
  3. METOPROLOL TARTRATE [Concomitant]
  4. ESOMEPRAZOLE MAGNESIUM [Concomitant]
  5. GABAPENTIN [Concomitant]
  6. AMLODIPINE BESYLATE [Concomitant]
  7. INSULIN [Concomitant]
  8. ASPIRIN [Concomitant]

REACTIONS (1)
  - MYOCARDIAL INFARCTION [None]
